FAERS Safety Report 23871246 (Version 1)
Quarter: 2024Q2

REPORT INFORMATION
  Report Type: Spontaneous
  Country: RU (occurrence: RU)
  Receive Date: 20240519
  Receipt Date: 20240519
  Transmission Date: 20240715
  Serious: Yes (Other)
  Sender: FDA-Public Use
  Company Number: RU-SANDOZ-SDZ2024RU049797

PATIENT
  Age: 39 Year
  Sex: Female

DRUGS (1)
  1. METHOTREXATE [Suspect]
     Active Substance: METHOTREXATE
     Indication: Rheumatic fever
     Dosage: 20 MG
     Route: 065

REACTIONS (1)
  - Basal cell carcinoma [Unknown]
